FAERS Safety Report 4306017-X (Version None)
Quarter: 2004Q1

REPORT INFORMATION
  Report Type: 
  Country: None (occurrence: None)
  Receive Date: 20040225
  Receipt Date: 20040205
  Transmission Date: 20041129
  Serious: Yes (Hospitalization, Other)
  Sender: FDA-Public Use
  Company Number: US_0402100510

PATIENT
  Sex: Male

DRUGS (1)
  1. PERMAX [Suspect]
     Indication: PARKINSON'S DISEASE
     Dates: start: 19970101

REACTIONS (4)
  - CARDIAC FAILURE [None]
  - CARDIAC VALVE DISEASE [None]
  - CARDIOMEGALY [None]
  - MARITAL PROBLEM [None]
